FAERS Safety Report 9173274 (Version 1)
Quarter: 2013Q1

REPORT INFORMATION
  Report Type: Spontaneous
  Country: US (occurrence: None)
  Receive Date: 20130319
  Receipt Date: 20130319
  Transmission Date: 20140127
  Serious: No
  Sender: FDA-Public Use
  Company Number: None

PATIENT
  Age: 81 Year
  Sex: Male
  Weight: 79.38 kg

DRUGS (1)
  1. NAMENDA [Suspect]
     Indication: UNEVALUABLE EVENT
     Dates: start: 20130318, end: 20130318

REACTIONS (1)
  - Palpitations [None]
